FAERS Safety Report 7592979-4 (Version None)
Quarter: 2011Q3

REPORT INFORMATION
  Report Type: 
  Country: None (occurrence: None)
  Receive Date: 20110706
  Receipt Date: 20110614
  Transmission Date: 20111222
  Serious: Yes (Hospitalization, Congenital Anomaly)
  Sender: FDA-Public Use
  Company Number: US-GLAXOSMITHKLINE-A0934837A

PATIENT
  Sex: Female

DRUGS (3)
  1. TRAZODONE HCL [Concomitant]
     Route: 064
  2. PAXIL CR [Suspect]
     Indication: DEPRESSED MOOD
     Dosage: 12.5MG PER DAY
     Route: 064
     Dates: start: 20030320, end: 20041201
  3. PAXIL [Suspect]
     Indication: DEPRESSED MOOD
     Dosage: 10MG PER DAY
     Route: 064
     Dates: start: 20030417, end: 20030612

REACTIONS (4)
  - VENTRICULAR SEPTAL DEFECT [None]
  - PATENT DUCTUS ARTERIOSUS [None]
  - ATRIAL SEPTAL DEFECT [None]
  - MATERNAL EXPOSURE DURING PREGNANCY [None]
